FAERS Safety Report 8785121 (Version 1)
Quarter: 2012Q4

REPORT INFORMATION
  Report Type: Spontaneous
  Country: US (occurrence: None)
  Receive Date: 20120831
  Receipt Date: 20120831
  Transmission Date: 20130627
  Serious: Yes (Hospitalization)
  Sender: FDA-Public Use
  Company Number: 2012-003125

PATIENT
  Age: 78 Year
  Sex: Male

DRUGS (3)
  1. ASACOL [Suspect]
     Indication: COLITIS
     Route: 048
     Dates: start: 20120825
  2. LISINOPRIL (LISINOPRIL) [Concomitant]
  3. INSULIN (INSULIN) [Concomitant]

REACTIONS (8)
  - Loss of consciousness [None]
  - Malaise [None]
  - Diarrhoea [None]
  - Abdominal pain [None]
  - Vomiting [None]
  - Cold sweat [None]
  - Dizziness [None]
  - Blood pressure increased [None]
